FAERS Safety Report 18934958 (Version 1)
Quarter: 2021Q1

REPORT INFORMATION
  Report Type: Spontaneous
  Country: CA (occurrence: CA)
  Receive Date: 20210224
  Receipt Date: 20210224
  Transmission Date: 20210420
  Serious: Yes (Hospitalization, Other)
  Sender: FDA-Public Use
  Company Number: CA-009507513-2102CAN007840

PATIENT
  Age: 69 Year
  Sex: Male

DRUGS (5)
  1. KEYTRUDA [Suspect]
     Active Substance: PEMBROLIZUMAB
     Dosage: 200 MG PER CYCLE
  2. ABIRATERONE. [Concomitant]
     Active Substance: ABIRATERONE ACETATE
     Dosage: 750 MILLIGRAM, QD
  3. KEYTRUDA [Suspect]
     Active Substance: PEMBROLIZUMAB
     Indication: HORMONE-REFRACTORY PROSTATE CANCER
     Dosage: 200 MG PER CYCLE
  4. ABIRATERONE. [Concomitant]
     Active Substance: ABIRATERONE ACETATE
     Dosage: 1000 MILLIGRAM, QD
  5. PREDNISONE. [Concomitant]
     Active Substance: PREDNISONE
     Dosage: 5 MG TWICE DAILY

REACTIONS (6)
  - Immune-mediated hepatitis [Unknown]
  - Immune-mediated myocarditis [Unknown]
  - Immune-mediated myositis [Unknown]
  - Accelerated idioventricular rhythm [Recovered/Resolved]
  - Cardiogenic shock [Unknown]
  - Off label use [Unknown]
